FAERS Safety Report 5706975-2 (Version None)
Quarter: 2008Q2

REPORT INFORMATION
  Report Type: 
  Country: None (occurrence: None)
  Receive Date: 20080416
  Receipt Date: 20080411
  Transmission Date: 20081010
  Serious: Yes (Hospitalization)
  Sender: FDA-Public Use
  Company Number: FR-BRISTOL-MYERS SQUIBB COMPANY-14151591

PATIENT
  Age: 57 Year
  Sex: Male

DRUGS (8)
  1. GLUCOPHAGE [Suspect]
     Indication: TYPE 2 DIABETES MELLITUS
     Dosage: RESTARTED ON NOV2007-500 MG(850MG TAB) 2DOSAGEFORM/DAY + INCREASED TO 3DOSAGEFORM/DAY
     Route: 048
     Dates: end: 20080318
  2. PIOGLITAZONE HCL [Suspect]
  3. NOVOLOG MIX 70/30 [Concomitant]
  4. PLAVIX [Concomitant]
  5. ATORVASTATIN CALCIUM [Concomitant]
  6. PRETERAX [Concomitant]
  7. STILNOX [Concomitant]
  8. MOTILYO [Concomitant]

REACTIONS (4)
  - ABDOMINAL PAIN UPPER [None]
  - ANOREXIA [None]
  - NAUSEA [None]
  - VOMITING [None]
